FAERS Safety Report 7498530-1 (Version None)
Quarter: 2011Q2

REPORT INFORMATION
  Report Type: 
  Country: None (occurrence: None)
  Receive Date: 20110524
  Receipt Date: 20110505
  Transmission Date: 20111010
  Serious: Yes (Hospitalization)
  Sender: FDA-Public Use
  Company Number: DE-BAYER-2011-038878

PATIENT
  Age: 71 Year
  Sex: Female
  Weight: 75 kg

DRUGS (1)
  1. GADOBUTROL [Suspect]
     Dosage: 0.1 MMOL/KG BODY WIGHT
     Dates: start: 20081101, end: 20081101

REACTIONS (3)
  - COLLAGEN DISORDER [None]
  - ALVEOLITIS [None]
  - PULMONARY FIBROSIS [None]
